FAERS Safety Report 15753561 (Version 1)
Quarter: 2018Q4

REPORT INFORMATION
  Report Type: Spontaneous
  Country: GB (occurrence: GB)
  Receive Date: 20181222
  Receipt Date: 20181222
  Transmission Date: 20190205
  Serious: Yes (Disabling)
  Sender: FDA-Public Use
  Company Number: GB-TEVA-2018-GB-989652

PATIENT
  Age: 73 Year
  Sex: Female
  Weight: 80.2 kg

DRUGS (7)
  1. CAPECITABINE. [Suspect]
     Active Substance: CAPECITABINE
     Indication: COLON CANCER STAGE III
     Dosage: 4800 MILLIGRAM DAILY;
     Route: 048
     Dates: start: 20181015, end: 20181018
  2. PREGABALIN. [Concomitant]
     Active Substance: PREGABALIN
  3. CANDESARTAN. [Concomitant]
     Active Substance: CANDESARTAN
  4. AMLODIPINE [Concomitant]
     Active Substance: AMLODIPINE BESYLATE
  5. PARACETAMOL [Concomitant]
     Active Substance: ACETAMINOPHEN
  6. ATORVASTATIN [Concomitant]
     Active Substance: ATORVASTATIN
  7. METFORMIN [Concomitant]
     Active Substance: METFORMIN HYDROCHLORIDE

REACTIONS (6)
  - Diarrhoea [Recovered/Resolved]
  - Dyspnoea [Unknown]
  - Decreased appetite [Unknown]
  - Lower respiratory tract infection [Unknown]
  - Fatigue [Unknown]
  - Exercise tolerance decreased [Unknown]

NARRATIVE: CASE EVENT DATE: 20181020
